FAERS Safety Report 11822081 (Version 1)
Quarter: 2015Q4

REPORT INFORMATION
  Report Type: Spontaneous
  Country: US (occurrence: US)
  Receive Date: 20151210
  Receipt Date: 20151210
  Transmission Date: 20160305
  Serious: No
  Sender: FDA-Public Use
  Company Number: US-JNJFOC-20150710683

PATIENT
  Age: 79 Year
  Sex: Male

DRUGS (7)
  1. IMBRUVICA [Suspect]
     Active Substance: IBRUTINIB
     Indication: WALDENSTROM^S MACROGLOBULINAEMIA
     Route: 048
     Dates: start: 2015
  2. ONDANSETRON [Concomitant]
     Active Substance: ONDANSETRON
  3. IMBRUVICA [Suspect]
     Active Substance: IBRUTINIB
     Indication: MONOCLONAL GAMMOPATHY
     Route: 048
     Dates: start: 20150602, end: 2015
  4. IMBRUVICA [Suspect]
     Active Substance: IBRUTINIB
     Indication: MONOCLONAL GAMMOPATHY
     Route: 048
     Dates: start: 2015
  5. VASOTEC [Concomitant]
     Active Substance: ENALAPRIL MALEATE
  6. IMBRUVICA [Suspect]
     Active Substance: IBRUTINIB
     Indication: WALDENSTROM^S MACROGLOBULINAEMIA
     Route: 048
     Dates: start: 20150602, end: 2015
  7. FLURAZEPAM [Concomitant]
     Active Substance: FLURAZEPAM\FLURAZEPAM HYDROCHLORIDE

REACTIONS (6)
  - Blood pressure increased [Recovered/Resolved]
  - Off label use [Unknown]
  - Insomnia [Unknown]
  - Dizziness [Recovered/Resolved]
  - Feeling jittery [Recovered/Resolved]
  - Anxiety [Recovered/Resolved]

NARRATIVE: CASE EVENT DATE: 2015
